FAERS Safety Report 9915968 (Version 2)
Quarter: 2014Q1

REPORT INFORMATION
  Report Type: Spontaneous
  Country: US (occurrence: None)
  Receive Date: 20140219
  Receipt Date: 20140305
  Transmission Date: 20141002
  Serious: Yes (Hospitalization, Other)
  Sender: FDA-Public Use
  Company Number: SYM-2014-15944

PATIENT
  Age: 44 Year
  Sex: Female

DRUGS (1)
  1. XENAZINE [Suspect]
     Indication: CHOREA
     Dosage: 12.5 MG, EVERY MORNING, ORAL
     Route: 048
     Dates: start: 20140114

REACTIONS (4)
  - Pneumonia [None]
  - Pleurisy [None]
  - Asthma [None]
  - Bronchitis [None]
